FAERS Safety Report 13500279 (Version 1)
Quarter: 2017Q2

REPORT INFORMATION
  Report Type: Spontaneous
  Country: RU (occurrence: RU)
  Receive Date: 20170501
  Receipt Date: 20170501
  Transmission Date: 20170830
  Serious: Yes (Other)
  Sender: FDA-Public Use
  Company Number: RU-BAYER-2017-075869

PATIENT
  Sex: Male

DRUGS (1)
  1. BILTRICID [Suspect]
     Active Substance: PRAZIQUANTEL
     Indication: OPISTHORCHIASIS
     Dosage: 3 DF, Q4HR

REACTIONS (2)
  - Underdose [None]
  - Opisthorchiasis [None]
